FAERS Safety Report 9553910 (Version 2)
Quarter: 2013Q4

REPORT INFORMATION
  Report Type: Spontaneous
  Country: FR (occurrence: FR)
  Receive Date: 20130925
  Receipt Date: 20131003
  Transmission Date: 20140711
  Serious: Yes (Hospitalization, Other)
  Sender: FDA-Public Use
  Company Number: FR-VERTEX PHARMACEUTICALS INC-2013-009911

PATIENT
  Age: 47 Year
  Sex: Male

DRUGS (14)
  1. INCIVO [Suspect]
     Indication: HEPATITIS C
     Route: 048
     Dates: start: 20120724, end: 20121024
  2. PEGASYS [Suspect]
     Indication: HEPATITIS C
     Route: 058
     Dates: start: 20120724, end: 20130515
  3. REBETOL [Suspect]
     Indication: HEPATITIS C
     Dosage: 1200 MG, QD
     Route: 065
     Dates: start: 20120724, end: 20130517
  4. METHADONE [Suspect]
     Indication: DRUG WITHDRAWAL MAINTENANCE THERAPY
     Dosage: 20 MG, QD
     Route: 048
     Dates: start: 20071025
  5. REYATAZ [Concomitant]
     Indication: HIV INFECTION
     Dosage: 300 MG, QD
     Route: 048
     Dates: start: 20120705
  6. BRICANYL [Concomitant]
     Indication: CHRONIC OBSTRUCTIVE PULMONARY DISEASE
     Dosage: 30 MG, QD
  7. OXYGEN [Concomitant]
     Dosage: 0.5 ML/MINUTE, NASAL CANULA (ALL THE TIME)
     Route: 045
     Dates: start: 2011
  8. INTELENCE [Concomitant]
     Indication: HIV INFECTION
     Dosage: 20 MG, QD
     Route: 048
     Dates: start: 20090630
  9. NORVIR [Concomitant]
     Indication: HIV INFECTION
     Dosage: 100 MG, QD
     Route: 048
     Dates: start: 20120705
  10. SEROPRAM [Concomitant]
     Indication: DEPRESSION
     Dosage: 20 MG, QD
     Route: 048
     Dates: start: 20080626
  11. SEROPRAM [Concomitant]
     Indication: ANXIETY
  12. SERETIDE [Concomitant]
     Dosage: UNK
     Route: 065
     Dates: start: 20130816
  13. LEXOMIL [Concomitant]
     Indication: ANXIETY
     Dosage: 1 DF, QD
     Route: 048
  14. HALDOL [Concomitant]
     Indication: ANXIETY
     Dosage: 1 MG, QD
     Route: 048

REACTIONS (5)
  - Lung disorder [Unknown]
  - Intentional overdose [Unknown]
  - Anaemia [Recovered/Resolved]
  - Thrombocytopenia [Recovered/Resolved]
  - Off label use [Unknown]
